FAERS Safety Report 6727725-7 (Version None)
Quarter: 2010Q2

REPORT INFORMATION
  Report Type: 
  Country: None (occurrence: None)
  Receive Date: 20100517
  Receipt Date: 20100511
  Transmission Date: 20101027
  Serious: Yes (Life-Threatening, Hospitalization)
  Sender: FDA-Public Use
  Company Number: BE-B.I. PHARMACEUTICALS,INC./RIDGEFIELD-2010-BL-00076BL

PATIENT
  Sex: Female

DRUGS (4)
  1. VIRAMUNE [Suspect]
     Indication: HIV INFECTION
     Dosage: 200 MG
     Route: 048
     Dates: start: 20100318, end: 20100401
  2. VIRAMUNE [Suspect]
     Dosage: 400 MG
     Route: 048
     Dates: start: 20100402, end: 20100507
  3. CLAMOXYL [Suspect]
     Indication: RHINOLARYNGITIS
     Dates: start: 20100505, end: 20100507
  4. TRUVADA [Concomitant]
     Indication: HIV INFECTION

REACTIONS (4)
  - FEELING ABNORMAL [None]
  - LEUKOPENIA [None]
  - LYMPHADENOPATHY [None]
  - NASOPHARYNGITIS [None]
